FAERS Safety Report 8592239-9 (Version None)
Quarter: 2012Q3

REPORT INFORMATION
  Report Type: 
  Country: None (occurrence: None)
  Receive Date: 20120814
  Receipt Date: 20120806
  Transmission Date: 20120928
  Serious: Yes (Hospitalization, Other)
  Sender: FDA-Public Use
  Company Number: US-US-EMD SERONO, INC.-7138579

PATIENT
  Sex: Male

DRUGS (1)
  1. REBIF [Suspect]
     Indication: MULTIPLE SCLEROSIS
     Route: 058
     Dates: start: 20071206

REACTIONS (5)
  - HAEMORRHOIDAL HAEMORRHAGE [None]
  - THYROID DISORDER [None]
  - SPEECH DISORDER [None]
  - CHOKING [None]
  - ASPIRATION [None]
